FAERS Safety Report 5796892-4 (Version None)
Quarter: 2008Q3

REPORT INFORMATION
  Report Type: 
  Country: None (occurrence: None)
  Receive Date: 20080701
  Receipt Date: 20080617
  Transmission Date: 20090109
  Serious: Yes (Hospitalization)
  Sender: FDA-Public Use
  Company Number: US-ELI_LILLY_AND_COMPANY-US200806003896

PATIENT
  Sex: Female

DRUGS (3)
  1. FORTEO [Suspect]
     Indication: OSTEOPOROSIS
     Dates: start: 20080301, end: 20080401
  2. FORTEO [Suspect]
     Dates: start: 20080101
  3. CALCIUM [Concomitant]

REACTIONS (5)
  - DISCOMFORT [None]
  - ESCHERICHIA INFECTION [None]
  - MUSCLE SPASMS [None]
  - SEPSIS [None]
  - URINARY TRACT INFECTION [None]
